FAERS Safety Report 15231023 (Version 1)
Quarter: 2018Q3

REPORT INFORMATION
  Report Type: Spontaneous
  Country: US (occurrence: US)
  Receive Date: 20180802
  Receipt Date: 20180802
  Transmission Date: 20181010
  Serious: Yes (Other)
  Sender: FDA-Public Use
  Company Number: US-ACCORD-064095

PATIENT
  Age: 57 Year
  Sex: Female
  Weight: 73.48 kg

DRUGS (8)
  1. CYTOXAN [Suspect]
     Active Substance: CYCLOPHOSPHAMIDE
     Indication: INVASIVE DUCTAL BREAST CARCINOMA
  2. LISINOPRIL. [Concomitant]
     Active Substance: LISINOPRIL
     Dates: start: 2004
  3. ALOXI [Concomitant]
     Active Substance: PALONOSETRON HYDROCHLORIDE
  4. EMEND [Concomitant]
     Active Substance: APREPITANT
  5. FEMARA [Concomitant]
     Active Substance: LETROZOLE
  6. DECADRON [Concomitant]
     Active Substance: DEXAMETHASONE
  7. DOCETAXEL ACCORD [Suspect]
     Active Substance: DOCETAXEL
     Indication: INVASIVE DUCTAL BREAST CARCINOMA
     Dates: start: 20141023, end: 20150205
  8. NEULASTA [Concomitant]
     Active Substance: PEGFILGRASTIM

REACTIONS (1)
  - Alopecia [Not Recovered/Not Resolved]

NARRATIVE: CASE EVENT DATE: 201508
